FAERS Safety Report 10936292 (Version 1)
Quarter: 2015Q1

REPORT INFORMATION
  Report Type: Spontaneous
  Country: US (occurrence: None)
  Receive Date: 20150320
  Receipt Date: 20150320
  Transmission Date: 20150721
  Serious: No
  Sender: FDA-Public Use
  Company Number: None

PATIENT
  Age: 34 Year
  Sex: Female
  Weight: 104.33 kg

DRUGS (1)
  1. COPPER IUD [Suspect]
     Active Substance: COPPER

REACTIONS (3)
  - Pregnancy with contraceptive device [None]
  - Exposure during pregnancy [None]
  - Medical device complication [None]

NARRATIVE: CASE EVENT DATE: 20150317
